FAERS Safety Report 8188534-8 (Version None)
Quarter: 2012Q1

REPORT INFORMATION
  Report Type: 
  Country: None (occurrence: None)
  Receive Date: 20120306
  Receipt Date: 20120301
  Transmission Date: 20120608
  Serious: Yes (Other)
  Sender: FDA-Public Use
  Company Number: PHHY2012JP008870

PATIENT
  Sex: Male
  Weight: 59 kg

DRUGS (4)
  1. ZOMETA [Suspect]
     Indication: METASTASES TO BONE
     Dosage: UNK
     Route: 041
     Dates: start: 20090403
  2. DOCETAXEL [Concomitant]
     Dosage: UNK UKN, UNK
     Route: 065
     Dates: start: 20100303, end: 20110330
  3. PREDNISOLONE [Concomitant]
     Dosage: UNK UKN, UNK
     Route: 065
     Dates: start: 20100303, end: 20110419
  4. DECADRON [Concomitant]
     Dosage: UNK UKN, UNK
     Route: 065
     Dates: start: 20110420

REACTIONS (4)
  - TOOTHACHE [None]
  - OSTEONECROSIS OF JAW [None]
  - PAIN IN JAW [None]
  - BONE LESION [None]
